FAERS Safety Report 10821606 (Version 1)
Quarter: 2015Q1

REPORT INFORMATION
  Report Type: Spontaneous
  Country: US (occurrence: None)
  Receive Date: 20150213
  Receipt Date: 20150213
  Transmission Date: 20150721
  Serious: Yes (Hospitalization)
  Sender: FDA-Public Use
  Company Number: 2015SA015685

PATIENT
  Age: 20 Year
  Sex: Female

DRUGS (1)
  1. DIPHENHYDRAMINE [Suspect]
     Active Substance: DIPHENHYDRAMINE

REACTIONS (9)
  - Dry mouth [None]
  - Blood alcohol increased [None]
  - Lethargy [None]
  - Hallucination, visual [None]
  - Urinary retention [None]
  - Electrocardiogram QT prolonged [None]
  - Sinus tachycardia [None]
  - Overdose [None]
  - Loss of consciousness [None]
